FAERS Safety Report 22532618 (Version 1)
Quarter: 2023Q2

REPORT INFORMATION
  Report Type: Spontaneous
  Country: US (occurrence: US)
  Receive Date: 20230607
  Receipt Date: 20230607
  Transmission Date: 20230722
  Serious: Yes (Death)
  Sender: FDA-Public Use
  Company Number: US-002147023-NVSC2019US053745

PATIENT
  Age: 16 Year
  Sex: Male

DRUGS (2)
  1. MYCOPHENOLATE MOFETIL [Suspect]
     Active Substance: MYCOPHENOLATE MOFETIL
     Indication: Product used for unknown indication
     Dosage: UNK
     Route: 065
  2. ABATACEPT [Suspect]
     Active Substance: ABATACEPT
     Indication: Protein deficiency
     Dosage: UNK (2 DOSES)
     Route: 065

REACTIONS (3)
  - Cytomegalovirus infection [Fatal]
  - Aplasia pure red cell [Fatal]
  - Acquired amegakaryocytic thrombocytopenia [Fatal]
